FAERS Safety Report 5289690-1 (Version None)
Quarter: 2007Q1

REPORT INFORMATION
  Report Type: 
  Country: None (occurrence: None)
  Receive Date: 20070330
  Receipt Date: 20070321
  Transmission Date: 20070707
  Serious: Yes (Life-Threatening, Other)
  Sender: FDA-Public Use
  Company Number: 100#03#2007-00932

PATIENT
  Age: 47 Year
  Sex: Female

DRUGS (1)
  1. CITALOPRAM HYDROBROMIDE [Suspect]
     Indication: DRUG USE FOR UNKNOWN INDICATION
     Dosage: 40 MG, INCREASED TO 60 MG ORAL
     Route: 048

REACTIONS (6)
  - CRYING [None]
  - INCREASED APPETITE [None]
  - RESTLESSNESS [None]
  - SELF-INJURIOUS IDEATION [None]
  - SLEEP DISORDER [None]
  - SUICIDAL IDEATION [None]
